FAERS Safety Report 4664186-6 (Version None)
Quarter: 2005Q2

REPORT INFORMATION
  Report Type: 
  Country: None (occurrence: None)
  Receive Date: 20050516
  Receipt Date: 20050516
  Transmission Date: 20051028
  Serious: Yes (Other)
  Sender: FDA-Public Use
  Company Number: None

PATIENT
  Sex: Female

DRUGS (1)
  1. PROMETHAZINE 6.2 MG SQ [Suspect]
     Indication: NAUSEA
     Dosage: 6.2 MG X 1 DOSE
     Dates: start: 20050107

REACTIONS (4)
  - CONFUSIONAL STATE [None]
  - HYPOXIA [None]
  - LETHARGY [None]
  - SWELLING FACE [None]
